FAERS Safety Report 24727604 (Version 1)
Quarter: 2024Q4

REPORT INFORMATION
  Report Type: Spontaneous
  Country: US (occurrence: US)
  Receive Date: 20241212
  Receipt Date: 20241212
  Transmission Date: 20250115
  Serious: No
  Sender: SANDOZ
  Company Number: US-Sandoz Group AG-00008680

PATIENT
  Age: 74 Year

DRUGS (5)
  1. ASPIRIN, BUTALBITAL, AND CAFFEINE [Suspect]
     Active Substance: ASPIRIN\BUTALBITAL\CAFFEINE
     Indication: Product used for unknown indication
     Route: 065
  2. BACLOFEN [Concomitant]
     Active Substance: BACLOFEN
     Indication: Product used for unknown indication
     Dosage: BACLOFEN AS NEEDED (MUSCLE RELAXER)
     Route: 065
  3. HYDRALAZINE [Concomitant]
     Active Substance: HYDRALAZINE HYDROCHLORIDE
     Indication: Product used for unknown indication
     Dosage: 10 MG, TIW,(HYDRALAZINE 10 MG 3 TIMES A DAY)
     Route: 065
  4. PERCOCET [Concomitant]
     Active Substance: ACETAMINOPHEN\OXYCODONE HYDROCHLORIDE
     Indication: Product used for unknown indication
     Dosage: 10 MG, QID,(10 MG 4 TIMES A DAY)
     Route: 065
  5. VALIUM [Concomitant]
     Active Substance: DIAZEPAM
     Indication: Product used for unknown indication
     Dosage: 5 MG, BID, (VALIUM (DIAZEPAM) 5 MG 2 TIMES A DAY)
     Route: 065

REACTIONS (4)
  - Mood swings [Unknown]
  - Feeling abnormal [Unknown]
  - Fatigue [Unknown]
  - Drug ineffective [Unknown]

NARRATIVE: CASE EVENT DATE: 20241203
